FAERS Safety Report 23778950 (Version 2)
Quarter: 2024Q2

REPORT INFORMATION
  Report Type: Spontaneous
  Country: GB (occurrence: GB)
  Receive Date: 20240424
  Receipt Date: 20240507
  Transmission Date: 20240716
  Serious: Yes (Hospitalization)
  Sender: FDA-Public Use
  Company Number: GB-DSJP-DSE-2024-118040

PATIENT
  Age: 55 Year
  Sex: Female

DRUGS (4)
  1. ENHERTU [Suspect]
     Active Substance: FAM-TRASTUZUMAB DERUXTECAN-NXKI
     Indication: Breast cancer
     Dosage: 470 MG, CYCLIC
     Route: 042
     Dates: start: 20231211, end: 20231211
  2. ENHERTU [Suspect]
     Active Substance: FAM-TRASTUZUMAB DERUXTECAN-NXKI
     Dosage: 380 MG, CYCLIC
     Route: 065
     Dates: start: 20240129, end: 20240129
  3. ENHERTU [Suspect]
     Active Substance: FAM-TRASTUZUMAB DERUXTECAN-NXKI
     Dosage: 380 MG, CYCLIC
     Route: 065
     Dates: start: 20240219, end: 20240219
  4. ENHERTU [Suspect]
     Active Substance: FAM-TRASTUZUMAB DERUXTECAN-NXKI
     Dosage: 380 MG, CYCLIC
     Route: 065
     Dates: start: 20240318

REACTIONS (7)
  - Cellulitis [Not Recovered/Not Resolved]
  - Lower respiratory tract infection [Unknown]
  - Pseudo Cushing^s syndrome [Unknown]
  - Swelling face [Unknown]
  - Pneumonia [Unknown]
  - Pyrexia [Unknown]
  - Intentional product use issue [Unknown]

NARRATIVE: CASE EVENT DATE: 20240129
